FAERS Safety Report 9721396 (Version 3)
Quarter: 2013Q4

REPORT INFORMATION
  Report Type: Spontaneous
  Country: US (occurrence: US)
  Receive Date: 20131129
  Receipt Date: 20131231
  Transmission Date: 20140711
  Serious: Yes (Other)
  Sender: FDA-Public Use
  Company Number: US-PFIZER INC-2013341289

PATIENT
  Age: 71 Year
  Sex: Female

DRUGS (2)
  1. LOMOTIL [Suspect]
     Indication: DIARRHOEA
     Dosage: UNK
     Dates: start: 1993
  2. LOMOTIL [Suspect]
     Dosage: 18 DF, DAILY

REACTIONS (6)
  - Intentional drug misuse [Unknown]
  - Drug dependence [Unknown]
  - Pericardial effusion [Unknown]
  - Systemic lupus erythematosus [Unknown]
  - Cardiac disorder [Unknown]
  - Drug effect incomplete [Unknown]
